FAERS Safety Report 19504686 (Version 2)
Quarter: 2022Q1

REPORT INFORMATION
  Report Type: Spontaneous
  Country: US (occurrence: US)
  Receive Date: 20210707
  Receipt Date: 20220125
  Transmission Date: 20220423
  Serious: Yes (Other)
  Sender: FDA-Public Use
  Company Number: US-GILEAD-2021-0539470

PATIENT
  Sex: Female
  Weight: 68.027 kg

DRUGS (61)
  1. VIREAD [Suspect]
     Active Substance: TENOFOVIR DISOPROXIL FUMARATE
     Indication: HIV infection
     Dosage: UNK
     Route: 048
     Dates: start: 2001
  2. VIREAD [Suspect]
     Active Substance: TENOFOVIR DISOPROXIL FUMARATE
     Dosage: UNK
     Route: 048
     Dates: start: 200302, end: 201307
  3. IBUPROFEN [Concomitant]
     Active Substance: IBUPROFEN
  4. CRIXIVAN [Concomitant]
     Active Substance: INDINAVIR SULFATE
  5. EPZICOM [Concomitant]
     Active Substance: ABACAVIR SULFATE\LAMIVUDINE
  6. KALETRA [Concomitant]
     Active Substance: LOPINAVIR\RITONAVIR
  7. NORVIR [Concomitant]
     Active Substance: RITONAVIR
  8. PREZCOBIX [Concomitant]
     Active Substance: COBICISTAT\DARUNAVIR ETHANOLATE
  9. PREZISTA [Concomitant]
     Active Substance: DARUNAVIR ETHANOLATE
  10. SUSTIVA [Concomitant]
     Active Substance: EFAVIRENZ
  11. TRIUMEQ [Concomitant]
     Active Substance: ABACAVIR SULFATE\DOLUTEGRAVIR SODIUM\LAMIVUDINE
  12. VIDEX [Concomitant]
     Active Substance: DIDANOSINE
  13. VIRACEPT [Concomitant]
     Active Substance: NELFINAVIR MESYLATE
  14. ZIAGEN [Concomitant]
     Active Substance: ABACAVIR SULFATE
  15. ZERIT [Concomitant]
     Active Substance: STAVUDINE
  16. ACTOS [Concomitant]
     Active Substance: PIOGLITAZONE HYDROCHLORIDE
  17. ALLEGRA D 12HR [Concomitant]
  18. AMOXICILLIN\CLAVULANATE POTASSIUM [Concomitant]
     Active Substance: AMOXICILLIN\CLAVULANATE POTASSIUM
  19. ASPIRIN [Concomitant]
     Active Substance: ASPIRIN
  20. BACLOFEN [Concomitant]
     Active Substance: BACLOFEN
  21. BASAGLAR [Concomitant]
     Active Substance: INSULIN GLARGINE
  22. CARVEDILOL [Concomitant]
     Active Substance: CARVEDILOL
  23. CEFDINIR [Concomitant]
     Active Substance: CEFDINIR
  24. CEPHALEXIN [Concomitant]
     Active Substance: CEPHALEXIN
  25. CLINDAMYCIN [Concomitant]
     Active Substance: CLINDAMYCIN
  26. CYCLOBENZAPRINE [Concomitant]
     Active Substance: CYCLOBENZAPRINE
  27. DIAZEPAM [Concomitant]
     Active Substance: DIAZEPAM
  28. DICLOFENAC [Concomitant]
     Active Substance: DICLOFENAC
  29. DILTIAZEM [Concomitant]
     Active Substance: DILTIAZEM
  30. DIPHENHYDRAMINE [Concomitant]
     Active Substance: DIPHENHYDRAMINE
  31. DOCUSATE [Concomitant]
     Active Substance: DOCUSATE
  32. DOVATO [Concomitant]
     Active Substance: DOLUTEGRAVIR SODIUM\LAMIVUDINE
  33. FLUCONAZOLE [Concomitant]
     Active Substance: FLUCONAZOLE
  34. FLUOXETINE [Concomitant]
     Active Substance: FLUOXETINE HYDROCHLORIDE
  35. GABAPENTIN [Concomitant]
     Active Substance: GABAPENTIN
  36. GEMFIBROZIL [Concomitant]
     Active Substance: GEMFIBROZIL
  37. GLIPIZIDE [Concomitant]
     Active Substance: GLIPIZIDE
  38. HUMALOG [Concomitant]
     Active Substance: INSULIN LISPRO
  39. ACETAMINOPHEN [Concomitant]
     Active Substance: ACETAMINOPHEN
  40. HYDROCODONE [Concomitant]
     Active Substance: HYDROCODONE
  41. ISOSORBIDE MONONITRATE [Concomitant]
     Active Substance: ISOSORBIDE MONONITRATE
  42. LANTUS [Concomitant]
     Active Substance: INSULIN GLARGINE
  43. LEVETIRACETAM [Concomitant]
     Active Substance: LEVETIRACETAM
  44. LISINOPRIL [Concomitant]
     Active Substance: LISINOPRIL
  45. MEPERIDINE HYDROCHLORIDE [Concomitant]
     Active Substance: MEPERIDINE HYDROCHLORIDE
  46. METFORMIN [Concomitant]
     Active Substance: METFORMIN HYDROCHLORIDE
  47. METHYLPREDNISOLONE [Concomitant]
     Active Substance: METHYLPREDNISOLONE
  48. NAPROXEN [Concomitant]
     Active Substance: NAPROXEN
  49. NOVOLOG [Concomitant]
     Active Substance: INSULIN ASPART
  50. OSELTAMIVIR [Concomitant]
     Active Substance: OSELTAMIVIR
  51. OXYCOD [OXYCODONE HYDROCHLORIDE] [Concomitant]
  52. ACETAMINOPHEN [Concomitant]
     Active Substance: ACETAMINOPHEN
  53. PRAVASTATIN [Concomitant]
     Active Substance: PRAVASTATIN
  54. ACETAMINOPHEN\PROPOXYPHENE NAPSYLATE [Concomitant]
     Active Substance: ACETAMINOPHEN\PROPOXYPHENE NAPSYLATE
  55. HUMULIN NOS [Concomitant]
     Active Substance: INSULIN HUMAN
  56. ROSUVASTATIN [Concomitant]
     Active Substance: ROSUVASTATIN
  57. TIZANIDINE [Concomitant]
     Active Substance: TIZANIDINE
  58. TRAMADOL [Concomitant]
     Active Substance: TRAMADOL
  59. TRULICITY [Concomitant]
     Active Substance: DULAGLUTIDE
  60. VALTREX [Concomitant]
     Active Substance: VALACYCLOVIR HYDROCHLORIDE
  61. ZETIA [Concomitant]
     Active Substance: EZETIMIBE

REACTIONS (15)
  - End stage renal disease [Not Recovered/Not Resolved]
  - Chronic kidney disease [Not Recovered/Not Resolved]
  - Renal injury [Unknown]
  - Pain [Not Recovered/Not Resolved]
  - Emotional distress [Not Recovered/Not Resolved]
  - Anxiety [Not Recovered/Not Resolved]
  - Anhedonia [Not Recovered/Not Resolved]
  - Bone density decreased [Not Recovered/Not Resolved]
  - Fatigue [Not Recovered/Not Resolved]
  - Mobility decreased [Not Recovered/Not Resolved]
  - Hyperphosphataemia [Not Recovered/Not Resolved]
  - Stress [Not Recovered/Not Resolved]
  - Decreased appetite [Not Recovered/Not Resolved]
  - Depression [Not Recovered/Not Resolved]
  - Asthenia [Not Recovered/Not Resolved]

NARRATIVE: CASE EVENT DATE: 20010101
